FAERS Safety Report 15686236 (Version 4)
Quarter: 2019Q3

REPORT INFORMATION
  Report Type: Spontaneous
  Country: JP (occurrence: JP)
  Receive Date: 20181204
  Receipt Date: 20190730
  Transmission Date: 20191004
  Serious: Yes (Life-Threatening, Hospitalization, Other)
  Sender: FDA-Public Use
  Company Number: PHJP2018JP020334

PATIENT
  Age: 70 Year
  Sex: Female

DRUGS (3)
  1. EXELON PATCH [Suspect]
     Active Substance: RIVASTIGMINE
     Indication: DEMENTIA WITH LEWY BODIES
     Dosage: 6.9 MG, QD (PATCH 7.5 CM2)
     Route: 062
     Dates: end: 20181203
  2. SUXAMETHONIUM [Suspect]
     Active Substance: SUCCINYLCHOLINE
     Indication: HYPOTONIA
     Dosage: 40 MG, UNK
     Route: 065
  3. THIOPENTAL [Concomitant]
     Active Substance: THIOPENTAL
     Indication: PRODUCT USED FOR UNKNOWN INDICATION
     Dosage: 75 MG, UNK
     Route: 065

REACTIONS (5)
  - Blood cholinesterase decreased [Recovering/Resolving]
  - Apnoea [Recovered/Resolved]
  - Pneumonia [Recovered/Resolved]
  - Female genital tract fistula [Recovered/Resolved]
  - Product use in unapproved indication [Unknown]

NARRATIVE: CASE EVENT DATE: 201812
